FAERS Safety Report 15726986 (Version 1)
Quarter: 2018Q4

REPORT INFORMATION
  Report Type: Spontaneous
  Country: US (occurrence: US)
  Receive Date: 20181217
  Receipt Date: 20181217
  Transmission Date: 20190205
  Serious: No
  Sender: FDA-Public Use
  Company Number: US-ASTRAZENECA-2018SF61939

PATIENT
  Age: 31960 Day
  Sex: Male

DRUGS (1)
  1. SYMBICORT [Suspect]
     Active Substance: BUDESONIDE\FORMOTEROL FUMARATE DIHYDRATE
     Indication: ASTHMA
     Dosage: 160/ 4.5 MCG ONE INHALATION TWICE DAILY
     Route: 055

REACTIONS (15)
  - Thyroid hormones increased [Unknown]
  - Gait disturbance [Unknown]
  - Product dose omission [Unknown]
  - Off label use [Unknown]
  - Dyspnoea [Unknown]
  - Intraocular pressure test abnormal [Unknown]
  - Intentional device misuse [Unknown]
  - Presyncope [Unknown]
  - Off label use of device [Unknown]
  - Memory impairment [Unknown]
  - Device issue [Unknown]
  - Wrong technique in device usage process [Unknown]
  - Intraocular pressure increased [Unknown]
  - Glaucoma [Unknown]
  - Visual acuity reduced [Unknown]
